FAERS Safety Report 5023444-6 (Version None)
Quarter: 2006Q2

REPORT INFORMATION
  Report Type: 
  Country: None (occurrence: None)
  Receive Date: 20060612
  Receipt Date: 20060327
  Transmission Date: 20061013
  Serious: Yes (Hospitalization)
  Sender: FDA-Public Use
  Company Number: US-SANOFI-SYNTHELABO-A03200601818

PATIENT
  Sex: Female
  Weight: 60.8 kg

DRUGS (2)
  1. ELOXATIN [Suspect]
     Indication: COLON CANCER METASTATIC
     Route: 042
     Dates: start: 20051118, end: 20051118
  2. XELODA [Concomitant]
     Dosage: 1000 MG TWICE A DAY, DAYS 1 TO 14 OF EACH CYCLE
     Route: 048

REACTIONS (15)
  - AORTIC VALVE INCOMPETENCE [None]
  - ASTHENIA [None]
  - BLOOD PRESSURE DECREASED [None]
  - CARDIAC FAILURE CONGESTIVE [None]
  - CHILLS [None]
  - CONFUSIONAL STATE [None]
  - DIARRHOEA [None]
  - EJECTION FRACTION DECREASED [None]
  - HEART RATE INCREASED [None]
  - LOSS OF CONSCIOUSNESS [None]
  - MITRAL VALVE INCOMPETENCE [None]
  - MYOCARDIAL INFARCTION [None]
  - PULMONARY OEDEMA [None]
  - TACHYCARDIA [None]
  - TRICUSPID VALVE INCOMPETENCE [None]
